FAERS Safety Report 9238681 (Version 4)
Quarter: 2013Q4

REPORT INFORMATION
  Report Type: Report from Study
  Country: CA (occurrence: CA)
  Receive Date: 20130418
  Receipt Date: 20131219
  Transmission Date: 20140711
  Serious: Yes (Other)
  Sender: FDA-Public Use
  Company Number: CA-JNJFOC-20130406961

PATIENT
  Age: 50 Year
  Sex: Male

DRUGS (4)
  1. STELARA [Suspect]
     Indication: PSORIASIS
     Dosage: TOTAL 3 DOSES
     Route: 058
     Dates: start: 20120614, end: 20121214
  2. LIPITOR [Concomitant]
     Route: 048
     Dates: start: 1999
  3. ATENOLOL [Concomitant]
     Route: 048
     Dates: start: 1999
  4. INDAPAMIDE [Concomitant]
     Route: 048
     Dates: start: 2000

REACTIONS (9)
  - Diabetes mellitus [Unknown]
  - Headache [Unknown]
  - Urinary tract disorder [Unknown]
  - Gastrooesophageal reflux disease [Unknown]
  - Dizziness [Unknown]
  - Intraocular pressure increased [Unknown]
  - Hypersensitivity [Unknown]
  - Nasopharyngitis [Recovered/Resolved]
  - Eye infection [Recovered/Resolved]
